FAERS Safety Report 9052791 (Version 1)
Quarter: 2013Q1

REPORT INFORMATION
  Report Type: Spontaneous
  Country: NO (occurrence: NO)
  Receive Date: 20130207
  Receipt Date: 20130207
  Transmission Date: 20140127
  Serious: Yes (Other)
  Sender: FDA-Public Use
  Company Number: NO-PFIZER INC-2013051943

PATIENT
  Age: 51 Year
  Sex: Male

DRUGS (1)
  1. DETRUSITOL [Suspect]

REACTIONS (2)
  - Detachment of retinal pigment epithelium [Recovering/Resolving]
  - Retinal oedema [Recovering/Resolving]
